FAERS Safety Report 20820046 (Version 1)
Quarter: 2022Q2

REPORT INFORMATION
  Report Type: Spontaneous
  Country: US (occurrence: None)
  Receive Date: 20220512
  Receipt Date: 20220512
  Transmission Date: 20220721
  Serious: No
  Sender: FDA-Public Use
  Company Number: None

PATIENT
  Age: 56 Year
  Sex: Male

DRUGS (1)
  1. BAMLANIVIMAB\ETESEVIMAB [Suspect]
     Active Substance: BAMLANIVIMAB\ETESEVIMAB
     Indication: SARS-CoV-2 test positive
     Dates: start: 20211214, end: 20211214

REACTIONS (3)
  - Urticaria [None]
  - Injection site pain [None]
  - Injection related reaction [None]

NARRATIVE: CASE EVENT DATE: 20211214
